FAERS Safety Report 13958564 (Version 1)
Quarter: 2017Q3

REPORT INFORMATION
  Report Type: Report from Study
  Country: AU (occurrence: AU)
  Receive Date: 20170912
  Receipt Date: 20170912
  Transmission Date: 20171128
  Serious: Yes (Death)
  Sender: FDA-Public Use
  Company Number: AU-VISTAPHARM, INC.-VER201709-000536

PATIENT
  Age: 52 Year
  Sex: Male

DRUGS (14)
  1. CODEINE [Suspect]
     Active Substance: CODEINE
  2. PHOLCODINE [Suspect]
     Active Substance: PHOLCODINE
  3. PROPOXYPHENE. [Suspect]
     Active Substance: PROPOXYPHENE
  4. DULOXETINE. [Suspect]
     Active Substance: DULOXETINE
  5. HYDROCODONE AND ACETAMINOPHEN [Suspect]
     Active Substance: ACETAMINOPHEN\HYDROCODONE
  6. METOCLOPRAMIDE. [Suspect]
     Active Substance: METOCLOPRAMIDE
  7. ARIPIPRAZOLE. [Suspect]
     Active Substance: ARIPIPRAZOLE
  8. METHAMPHETAMINE [Suspect]
     Active Substance: METHAMPHETAMINE
  9. CHLORPHENIRAMINE. [Suspect]
     Active Substance: CHLORPHENIRAMINE
  10. DIAZEPAM. [Suspect]
     Active Substance: DIAZEPAM
  11. MORPHINE [Suspect]
     Active Substance: MORPHINE
  12. LAMOTRIGINE. [Suspect]
     Active Substance: LAMOTRIGINE
  13. NITRAZEPAM [Suspect]
     Active Substance: NITRAZEPAM
  14. PROPRANOLOL [Suspect]
     Active Substance: PROPRANOLOL HYDROCHLORIDE

REACTIONS (2)
  - Drug interaction [Fatal]
  - Toxicity to various agents [Fatal]
